FAERS Safety Report 5366718-1 (Version None)
Quarter: 2007Q2

REPORT INFORMATION
  Report Type: 
  Country: None (occurrence: None)
  Receive Date: 20070622
  Receipt Date: 20060818
  Transmission Date: 20071010
  Serious: No
  Sender: FDA-Public Use
  Company Number: US-ASTRAZENECA-2006UW16505

PATIENT
  Age: 52 Year
  Sex: Male
  Weight: 74.8 kg

DRUGS (2)
  1. RHINOCORT [Suspect]
     Indication: SINUSITIS
     Route: 045
     Dates: start: 20060801
  2. AUGMENTIN '125' [Suspect]
     Dates: start: 20060801, end: 20060810

REACTIONS (1)
  - PRURITUS [None]
